FAERS Safety Report 11032255 (Version 2)
Quarter: 2015Q2

REPORT INFORMATION
  Report Type: Spontaneous
  Country: US (occurrence: US)
  Receive Date: 20150415
  Receipt Date: 20150525
  Transmission Date: 20150821
  Serious: Yes (Hospitalization)
  Sender: FDA-Public Use
  Company Number: US-JNJFOC-20141101217

PATIENT
  Age: 84 Year
  Sex: Female

DRUGS (6)
  1. ZETIA [Concomitant]
     Active Substance: EZETIMIBE
     Dosage: 10-20 MG
     Route: 065
  2. FENOFIBRATE. [Concomitant]
     Active Substance: FENOFIBRATE
     Route: 065
  3. ZITHROMAX [Concomitant]
     Active Substance: AZITHROMYCIN DIHYDRATE
     Route: 065
     Dates: end: 20141027
  4. XARELTO [Suspect]
     Active Substance: RIVAROXABAN
     Indication: ATRIAL FIBRILLATION
     Route: 048
  5. FISH OIL [Concomitant]
     Active Substance: FISH OIL
     Route: 065
  6. XARELTO [Suspect]
     Active Substance: RIVAROXABAN
     Indication: CEREBROVASCULAR ACCIDENT PROPHYLAXIS
     Route: 048

REACTIONS (3)
  - Gastrointestinal haemorrhage [Unknown]
  - Infection [Unknown]
  - Incorrect dose administered [Unknown]
